FAERS Safety Report 20480246 (Version 1)
Quarter: 2022Q1

REPORT INFORMATION
  Report Type: Spontaneous
  Country: US (occurrence: US)
  Receive Date: 20220216
  Receipt Date: 20220216
  Transmission Date: 20220423
  Serious: Yes (Other)
  Sender: FDA-Public Use
  Company Number: US-JNJFOC-20220235379

PATIENT
  Sex: Male

DRUGS (1)
  1. ROGAINE [Suspect]
     Active Substance: MINOXIDIL
     Indication: Product used for unknown indication
     Route: 065

REACTIONS (7)
  - Erectile dysfunction [Unknown]
  - Emotional disorder [Unknown]
  - Penile size reduced [Unknown]
  - Constipation [Unknown]
  - Testicular atrophy [Unknown]
  - Mood altered [Unknown]
  - Alopecia [Unknown]
